FAERS Safety Report 18316675 (Version 4)
Quarter: 2022Q3

REPORT INFORMATION
  Report Type: Other
  Country: CA (occurrence: CA)
  Receive Date: 20200928
  Receipt Date: 20220827
  Transmission Date: 20221027
  Serious: Yes (Hospitalization, Other)
  Sender: FDA-Public Use
  Company Number: CA-CELLTRION INC.-2020CA026726

PATIENT

DRUGS (13)
  1. RITUXIMAB [Suspect]
     Active Substance: RITUXIMAB
     Indication: Lymphoplasmacytoid lymphoma/immunocytoma
     Dosage: UNK, CYCLIC
     Route: 042
  2. RITUXIMAB [Suspect]
     Active Substance: RITUXIMAB
     Indication: B-cell small lymphocytic lymphoma
     Dosage: UNK
     Route: 042
  3. RITUXIMAB [Suspect]
     Active Substance: RITUXIMAB
     Dosage: UNK
     Route: 041
  4. PREDNISONE [Suspect]
     Active Substance: PREDNISONE
     Indication: Lymphoplasmacytoid lymphoma/immunocytoma
     Dosage: UNK, CYCLICAL
     Route: 065
  5. PREDNISONE [Suspect]
     Active Substance: PREDNISONE
     Indication: B-cell small lymphocytic lymphoma
     Dosage: UNK
     Route: 065
  6. BENDAMUSTINE HYDROCHLORIDE [Suspect]
     Active Substance: BENDAMUSTINE HYDROCHLORIDE
     Indication: Lymphoplasmacytoid lymphoma/immunocytoma
     Route: 042
  7. CYCLOPHOSPHAMIDE [Suspect]
     Active Substance: CYCLOPHOSPHAMIDE
     Indication: Product used for unknown indication
     Route: 005
  8. PREDNISONE [Suspect]
     Active Substance: PREDNISONE
     Indication: Lymphoplasmacytoid lymphoma/immunocytoma
     Dosage: UNK, CYCLICAL
     Route: 065
  9. CYCLOPHOSPHAMIDE [Suspect]
     Active Substance: CYCLOPHOSPHAMIDE
     Indication: Lymphoplasmacytoid lymphoma/immunocytoma
     Dosage: UNK, CYCLICAL
     Route: 065
  10. CYCLOPHOSPHAMIDE [Suspect]
     Active Substance: CYCLOPHOSPHAMIDE
     Indication: B-cell small lymphocytic lymphoma
     Dosage: UNK
     Route: 042
  11. TREANDA [Suspect]
     Active Substance: BENDAMUSTINE HYDROCHLORIDE
     Indication: B-cell small lymphocytic lymphoma
     Route: 042
  12. VINCRISTINE SULFATE [Suspect]
     Active Substance: VINCRISTINE SULFATE
     Indication: Lymphoplasmacytoid lymphoma/immunocytoma
     Route: 065
  13. VINCRISTINE [Suspect]
     Active Substance: VINCRISTINE
     Indication: B-cell small lymphocytic lymphoma
     Route: 065

REACTIONS (13)
  - Diffuse large B-cell lymphoma [Unknown]
  - Erythropoiesis abnormal [Unknown]
  - Fear of injection [Unknown]
  - Neoplasm progression [Unknown]
  - Non-Hodgkin^s lymphoma [Unknown]
  - Second primary malignancy [Unknown]
  - Hypoaesthesia oral [Unknown]
  - Pancytopenia [Unknown]
  - Alopecia [Unknown]
  - Blood lactate dehydrogenase increased [Unknown]
  - Therapy responder [Unknown]
  - Therapeutic product effect incomplete [Unknown]
  - Off label use [Unknown]
